FAERS Safety Report 8917018 (Version 1)
Quarter: 2012Q4

REPORT INFORMATION
  Report Type: 
  Country: US (occurrence: US)
  Receive Date: 20121120
  Receipt Date: 20121120
  Transmission Date: 20130627
  Serious: Yes (Hospitalization)
  Sender: FDA-Public Use
  Company Number: US-ACTELION-A-US2012-72458

PATIENT
  Age: 49 Year
  Sex: Female

DRUGS (7)
  1. TRACLEER [Suspect]
     Indication: PULMONARY ARTERIAL HYPERTENSION
     Route: 048
  2. REMODULIN [Suspect]
  3. SILDENAFIL [Concomitant]
  4. COUMADIN [Concomitant]
  5. LOVENOX [Concomitant]
  6. TYVASO [Concomitant]
  7. ASPIRIN [Concomitant]

REACTIONS (3)
  - Adverse event [Unknown]
  - Pulmonary arterial hypertension [Unknown]
  - Malaise [Unknown]
